FAERS Safety Report 21888516 (Version 2)
Quarter: 2023Q2

REPORT INFORMATION
  Report Type: Spontaneous
  Country: US (occurrence: US)
  Receive Date: 20230120
  Receipt Date: 20230414
  Transmission Date: 20230722
  Serious: Yes (Other)
  Sender: FDA-Public Use
  Company Number: US-BRISTOL-MYERS SQUIBB COMPANY-2022-155474

PATIENT
  Age: 71 Year
  Sex: Male

DRUGS (2)
  1. POMALYST [Suspect]
     Active Substance: POMALIDOMIDE
     Indication: Plasma cell myeloma
     Dosage: FREQ:  DAILY ON DAYS 1-21 OF EACH 28 DAY CYCLE
     Route: 048
     Dates: start: 20221019
  2. POMALYST [Suspect]
     Active Substance: POMALIDOMIDE
     Dosage: FREQ:  DAILY ON DAYS 1-14 TAKE 1 CAPSULE BY MOUTH WHOLE WITH.
     Route: 048
     Dates: start: 20221019

REACTIONS (5)
  - Dizziness [Unknown]
  - Dyspnoea [Unknown]
  - Tachypnoea [Unknown]
  - Pulmonary embolism [Unknown]
  - Off label use [Unknown]
